FAERS Safety Report 25978346 (Version 1)
Quarter: 2025Q4

REPORT INFORMATION
  Report Type: Spontaneous
  Country: US (occurrence: US)
  Receive Date: 20251030
  Receipt Date: 20251030
  Transmission Date: 20260117
  Serious: Yes (Other)
  Sender: SPECGX
  Company Number: US-SPECGX-T202501747

PATIENT
  Sex: Male
  Weight: 80 kg

DRUGS (6)
  1. FENTANYL TRANSDERMAL SYSTEM [Suspect]
     Active Substance: FENTANYL
     Indication: Neck pain
     Dosage: UNK
     Route: 062
  2. FENTANYL TRANSDERMAL SYSTEM [Suspect]
     Active Substance: FENTANYL
     Indication: Back pain
     Dosage: 25 MICROGRAMS PER HOUR, CHANGED EVERY THREE DAYS
     Route: 062
     Dates: start: 2025
  3. CELECOXIB [Concomitant]
     Active Substance: CELECOXIB
     Indication: Product used for unknown indication
     Dosage: UNK
     Route: 065
  4. DULOXETINE [Concomitant]
     Active Substance: DULOXETINE
     Indication: Product used for unknown indication
     Dosage: UNK
     Route: 065
  5. GABAPENTIN [Concomitant]
     Active Substance: GABAPENTIN
     Indication: Product used for unknown indication
     Dosage: UNK
     Route: 065
  6. VICODIN [Concomitant]
     Active Substance: ACETAMINOPHEN\HYDROCODONE BITARTRATE
     Indication: Breakthrough pain
     Dosage: UNK (AS NEEDED)
     Route: 065

REACTIONS (7)
  - Spinal fusion surgery [Recovered/Resolved]
  - Glaucoma [Unknown]
  - Ankylosing spondylitis [Unknown]
  - Blood triglycerides increased [Unknown]
  - Hypertension [Unknown]
  - Product adhesion issue [Not Recovered/Not Resolved]
  - Therapeutic response shortened [Not Recovered/Not Resolved]

NARRATIVE: CASE EVENT DATE: 20250101
